FAERS Safety Report 7177366-5 (Version None)
Quarter: 2010Q4

REPORT INFORMATION
  Report Type: 
  Country: None (occurrence: None)
  Receive Date: 20101220
  Receipt Date: 20101206
  Transmission Date: 20110411
  Serious: Yes (Other)
  Sender: FDA-Public Use
  Company Number: PHHY2010US77047

PATIENT
  Sex: Female

DRUGS (2)
  1. RECLAST [Suspect]
     Dosage: UNK
     Dates: start: 20101104
  2. IV FLUID [Concomitant]
     Dosage: UNK

REACTIONS (6)
  - APHAGIA [None]
  - DIARRHOEA HAEMORRHAGIC [None]
  - INFLUENZA LIKE ILLNESS [None]
  - NASOPHARYNGITIS [None]
  - PAIN [None]
  - WEIGHT DECREASED [None]
